FAERS Safety Report 5499201-3 (Version None)
Quarter: 2007Q4

REPORT INFORMATION
  Report Type: 
  Country: None (occurrence: None)
  Receive Date: 20071026
  Receipt Date: 20071023
  Transmission Date: 20080405
  Serious: Yes (Death)
  Sender: FDA-Public Use
  Company Number: AU-AVENTIS-200717984GDDC

PATIENT
  Age: 80 Year
  Sex: Female

DRUGS (15)
  1. ARAVA [Suspect]
     Indication: RHEUMATOID ARTHRITIS
     Route: 048
     Dates: start: 20060406
  2. ARAVA [Suspect]
     Dates: start: 20050101
  3. PREDNISOLONE [Concomitant]
     Dosage: DOSE: UNK
  4. COVERSYL PLUS [Concomitant]
  5. ENDEP [Concomitant]
  6. FOSAMAX [Concomitant]
  7. NEXIUM [Concomitant]
  8. TRANSDERM-NITRO [Concomitant]
  9. PRESSIN [Concomitant]
  10. LAXATIVES [Concomitant]
     Dosage: DOSE: UNK
  11. COAXIL                             /00956301/ [Concomitant]
     Dosage: DOSE: UNK
  12. ACETAMINOPHEN [Concomitant]
     Dosage: DOSE: UNK
  13. FISH OIL [Concomitant]
     Dosage: DOSE: UNK
  14. GLUCOSAMINE [Concomitant]
     Dosage: DOSE: UNK
  15. ENDONE [Concomitant]

REACTIONS (1)
  - MYOCARDIAL INFARCTION [None]
